FAERS Safety Report 9529483 (Version 2)
Quarter: 2013Q3

REPORT INFORMATION
  Report Type: Spontaneous
  Country: CA (occurrence: US)
  Receive Date: 20130917
  Receipt Date: 20130917
  Transmission Date: 20140515
  Serious: Yes (Hospitalization)
  Sender: FDA-Public Use
  Company Number: CA-BAYER-2013-094098

PATIENT
  Age: 41 Year
  Sex: Female

DRUGS (1)
  1. MIRENA [Suspect]
     Dosage: 20 MCG/24HR, CONT
     Route: 015
     Dates: start: 20110204, end: 20110613

REACTIONS (7)
  - Uterine perforation [None]
  - Injury [None]
  - Post procedural discomfort [None]
  - Hydrometra [None]
  - Medical device pain [None]
  - Infection [None]
  - Device dislocation [None]
